FAERS Safety Report 19964726 (Version 2)
Quarter: 2022Q2

REPORT INFORMATION
  Report Type: Spontaneous
  Country: US (occurrence: US)
  Receive Date: 20211018
  Receipt Date: 20220428
  Transmission Date: 20220721
  Serious: No
  Sender: FDA-Public Use
  Company Number: US-PFIZER INC-2021154869

PATIENT
  Age: 64 Year
  Sex: Female

DRUGS (1)
  1. PREMARIN [Suspect]
     Active Substance: ESTROGENS, CONJUGATED
     Indication: Hot flush
     Dosage: 1.25 MG, 2X/DAY

REACTIONS (5)
  - Off label use [Unknown]
  - Illness [Unknown]
  - Weight decreased [Unknown]
  - Vomiting [Unknown]
  - Gastric disorder [Unknown]
